FAERS Safety Report 7402765-3 (Version None)
Quarter: 2011Q2

REPORT INFORMATION
  Report Type: 
  Country: None (occurrence: None)
  Receive Date: 20110408
  Receipt Date: 20110329
  Transmission Date: 20111010
  Serious: Yes (Hospitalization, Other)
  Sender: FDA-Public Use
  Company Number: US-SANOFI-AVENTIS-2011SA019229

PATIENT

DRUGS (8)
  1. OXALIPLATIN [Suspect]
     Indication: COLORECTAL CANCER
     Dosage: 2 HOUR INFUSION
     Route: 042
  2. IRINOTECAN [Concomitant]
     Indication: COLORECTAL CANCER
     Dosage: OVER 30 MINUTES
     Route: 065
  3. PYRIMIDINE ANALOGUES [Concomitant]
     Indication: COLORECTAL CANCER
     Dosage: PUMP
     Route: 065
  4. DEXAMETHASONE [Concomitant]
     Dosage: X 30 ML
     Route: 065
  5. LEUCOVORIN [Suspect]
     Indication: COLORECTAL CANCER
     Route: 042
  6. BEVACIZUMAB [Concomitant]
     Indication: COLORECTAL CANCER
     Dosage: DAY 15 AND DAY 29
     Route: 065
  7. FLUOROURACIL [Suspect]
     Indication: COLORECTAL CANCER
     Dosage: EXTERNAL PUMP
     Route: 042
  8. HEPARIN [Concomitant]
     Dosage: WITH NORMAL SALINE
     Route: 065

REACTIONS (13)
  - PORTAL VEIN THROMBOSIS [None]
  - DIARRHOEA [None]
  - ULCER [None]
  - NASAL SEPTUM PERFORATION [None]
  - ABDOMINAL PAIN [None]
  - MUCOSAL INFLAMMATION [None]
  - MALAISE [None]
  - CATHETER SITE HAEMORRHAGE [None]
  - FULL BLOOD COUNT DECREASED [None]
  - INFECTION [None]
  - THROMBOSIS [None]
  - HYPERSENSITIVITY [None]
  - TOXICITY TO VARIOUS AGENTS [None]
